FAERS Safety Report 25645874 (Version 1)
Quarter: 2025Q3

REPORT INFORMATION
  Report Type: Spontaneous
  Country: US (occurrence: US)
  Receive Date: 20250805
  Receipt Date: 20250805
  Transmission Date: 20251021
  Serious: No
  Sender: PFIZER
  Company Number: US-PFIZER INC-PV202500094238

PATIENT
  Age: 76 Year
  Sex: Female

DRUGS (3)
  1. RIFABUTIN [Suspect]
     Active Substance: RIFABUTIN
  2. AZITHROMYCIN [Suspect]
     Active Substance: AZITHROMYCIN
     Route: 048
  3. MOXIFLOXACIN [Suspect]
     Active Substance: MOXIFLOXACIN
     Route: 048

REACTIONS (2)
  - Liver function test abnormal [Unknown]
  - Off label use [Unknown]
